FAERS Safety Report 14582401 (Version 1)
Quarter: 2018Q1

REPORT INFORMATION
  Report Type: Other
  Country: GB (occurrence: GB)
  Receive Date: 20180228
  Receipt Date: 20180228
  Transmission Date: 20180509
  Serious: Yes (Other)
  Sender: FDA-Public Use
  Company Number: GB-ASPEN-GLO2016GB006049

PATIENT
  Sex: Female

DRUGS (3)
  1. VINCRISTINE [Suspect]
     Active Substance: VINCRISTINE
     Indication: PLASMA CELL MYELOMA
     Dosage: UNK
     Route: 065
  2. DOXORUBICIN [Suspect]
     Active Substance: DOXORUBICIN
     Indication: PLASMA CELL MYELOMA
     Dosage: UNK
     Route: 065
  3. DEXAMETHASONE. [Suspect]
     Active Substance: DEXAMETHASONE
     Indication: PLASMA CELL MYELOMA
     Dosage: UNK
     Route: 065

REACTIONS (1)
  - Disease progression [Unknown]
